FAERS Safety Report 9242136 (Version 2)
Quarter: 2013Q2

REPORT INFORMATION
  Report Type: Spontaneous
  Country: IT (occurrence: IT)
  Receive Date: 20130419
  Receipt Date: 20130516
  Transmission Date: 20140414
  Serious: Yes (Hospitalization)
  Sender: FDA-Public Use
  Company Number: IT-JNJFOC-20130406592

PATIENT
  Age: 96 Year
  Sex: Male

DRUGS (3)
  1. SERENASE [Suspect]
     Indication: AGITATION
     Route: 048
     Dates: start: 20130201, end: 20130207
  2. LANSOPRAZOL [Concomitant]
     Indication: GASTRITIS
     Route: 048
  3. CARDIRENE [Concomitant]
     Indication: MYOCARDIAL ISCHAEMIA
     Route: 048

REACTIONS (2)
  - Renal failure [Recovered/Resolved]
  - Cardiac failure congestive [Recovered/Resolved]
